FAERS Safety Report 6235316-X (Version None)
Quarter: 2009Q2

REPORT INFORMATION
  Report Type: 
  Country: None (occurrence: None)
  Receive Date: 20090615
  Receipt Date: 20090605
  Transmission Date: 20091009
  Serious: Yes (Hospitalization)
  Sender: FDA-Public Use
  Company Number: 2009EU002237

PATIENT
  Age: 33 Year
  Sex: Female

DRUGS (1)
  1. PROTOPIC [Suspect]
     Indication: PRURIGO
     Dosage: 1 DF, QOD, TOPICAL
     Route: 061
     Dates: start: 20090108, end: 20090309

REACTIONS (3)
  - OFF LABEL USE [None]
  - PRURIGO [None]
  - SQUAMOUS CELL CARCINOMA [None]
